FAERS Safety Report 13612338 (Version 1)
Quarter: 2017Q2

REPORT INFORMATION
  Report Type: Spontaneous
  Country: US (occurrence: US)
  Receive Date: 20170605
  Receipt Date: 20170605
  Transmission Date: 20170830
  Serious: No
  Sender: FDA-Public Use
  Company Number: US-APOTEX-2017AP012048

PATIENT
  Age: 48 Year
  Sex: Male
  Weight: 92 kg

DRUGS (3)
  1. GABAPENTIN. [Suspect]
     Active Substance: GABAPENTIN
     Indication: SPINAL PAIN
     Dosage: 600 MG, TID
     Route: 065
     Dates: start: 20170327
  2. GABAPENTIN. [Suspect]
     Active Substance: GABAPENTIN
     Dosage: 400 MG, UNK
     Route: 065
  3. OXYCODONE [Suspect]
     Active Substance: OXYCODONE
     Indication: PRODUCT USED FOR UNKNOWN INDICATION
     Dosage: 5 MG, PRN, 5 TIMES A DAY
     Route: 065

REACTIONS (4)
  - Sinusitis [Recovering/Resolving]
  - Vision blurred [Recovering/Resolving]
  - Drug interaction [Unknown]
  - Muscle twitching [Recovering/Resolving]
